FAERS Safety Report 4358338-2 (Version None)
Quarter: 2004Q2

REPORT INFORMATION
  Report Type: 
  Country: None (occurrence: None)
  Receive Date: 20040511
  Receipt Date: 20040428
  Transmission Date: 20050107
  Serious: Yes (Hospitalization, Other)
  Sender: FDA-Public Use
  Company Number: 2004028813

PATIENT
  Age: 8 Year
  Sex: Male

DRUGS (1)
  1. ZYRTEC [Suspect]
     Indication: ILL-DEFINED DISORDER
     Dosage: DAILY, ORAL
     Route: 048
     Dates: start: 20020601, end: 20040401

REACTIONS (7)
  - ARTHRALGIA [None]
  - DYSGEUSIA [None]
  - OEDEMA PERIPHERAL [None]
  - PHARMACEUTICAL PRODUCT COMPLAINT [None]
  - SERUM SICKNESS [None]
  - SWELLING FACE [None]
  - URTICARIA [None]
